FAERS Safety Report 7601558-1 (Version None)
Quarter: 2011Q3

REPORT INFORMATION
  Report Type: 
  Country: None (occurrence: None)
  Receive Date: 20110711
  Receipt Date: 20110628
  Transmission Date: 20111222
  Serious: Yes (Other)
  Sender: FDA-Public Use
  Company Number: PHHY2011US57926

PATIENT

DRUGS (2)
  1. CLOZAPINE [Suspect]
  2. FANAPT [Suspect]

REACTIONS (3)
  - URINARY RETENTION [None]
  - RENAL DISORDER [None]
  - BLADDER DYSFUNCTION [None]
